FAERS Safety Report 23586136 (Version 1)
Quarter: 2024Q1

REPORT INFORMATION
  Report Type: Spontaneous
  Country: DE (occurrence: DE)
  Receive Date: 20240301
  Receipt Date: 20240301
  Transmission Date: 20240409
  Serious: Yes (Other)
  Sender: FDA-Public Use
  Company Number: DE-ARBOR PHARMACEUTICALS, LLC-DE-2024AZR000191

PATIENT
  Sex: Male

DRUGS (6)
  1. TRIPTODUR [Suspect]
     Active Substance: TRIPTORELIN
     Indication: Prostate cancer
     Dosage: 11.25 MG, EVERY 3 MONTHS (11.25 MG,3 M)
     Dates: start: 202103
  2. TRIPTODUR [Suspect]
     Active Substance: TRIPTORELIN
  3. TRIPTODUR [Suspect]
     Active Substance: TRIPTORELIN
  4. METFORMIN [Concomitant]
     Active Substance: METFORMIN HYDROCHLORIDE
     Indication: Product used for unknown indication
     Dosage: UNK
     Route: 065
  5. MAGNESIUM [Concomitant]
     Active Substance: MAGNESIUM
     Indication: Product used for unknown indication
     Dosage: OCCASIONALLY
     Route: 065
  6. VITAMIN D3 [Concomitant]
     Active Substance: CHOLECALCIFEROL
     Indication: Product used for unknown indication
     Dosage: LOW DOSE OF 2000
     Route: 065

REACTIONS (12)
  - Pelvic fracture [Unknown]
  - Hyperhidrosis [Unknown]
  - Pelvic pain [Unknown]
  - Back pain [Unknown]
  - Injection site hypertrophy [Unknown]
  - Hypoaesthesia [Unknown]
  - Muscle spasms [Unknown]
  - Onychoclasis [Unknown]
  - Blood testosterone abnormal [Unknown]
  - Hot flush [Unknown]
  - Blood testosterone increased [Unknown]
  - Drug ineffective [Unknown]
